FAERS Safety Report 11492913 (Version 1)
Quarter: 2015Q3

REPORT INFORMATION
  Report Type: Spontaneous
  Country: US (occurrence: None)
  Receive Date: 20150910
  Receipt Date: 20150910
  Transmission Date: 20151125
  Serious: Yes (Disabling)
  Sender: FDA-Public Use
  Company Number: None

PATIENT
  Age: 43 Year
  Sex: Female

DRUGS (10)
  1. BELVIQ [Suspect]
     Active Substance: LORCASERIN HYDROCHLORIDE
     Indication: WEIGHT DECREASED
     Dates: start: 20150425, end: 20150617
  2. PRILOSEC [Concomitant]
     Active Substance: OMEPRAZOLE MAGNESIUM
  3. CELEBREX [Concomitant]
     Active Substance: CELECOXIB
  4. TOPAMAX [Concomitant]
     Active Substance: TOPIRAMATE
  5. MULTIVITAMIN [Concomitant]
     Active Substance: VITAMINS
  6. CULTURELLE [Concomitant]
     Active Substance: LACTOBACILLUS RHAMNOSUS
  7. XOPENEX [Concomitant]
     Active Substance: LEVALBUTEROL HYDROCHLORIDE
  8. MACROBID [Concomitant]
     Active Substance: NITROFURANTOIN\NITROFURANTOIN MONOHYDRATE
  9. ALLERGY SERUM [Concomitant]
  10. RELPAX [Concomitant]
     Active Substance: ELETRIPTAN HYDROBROMIDE

REACTIONS (9)
  - Feeling cold [None]
  - Drug ineffective [None]
  - Breast engorgement [None]
  - Mood altered [None]
  - Breast pain [None]
  - Depression [None]
  - Fatigue [None]
  - Weight increased [None]
  - Galactorrhoea [None]

NARRATIVE: CASE EVENT DATE: 20150617
